FAERS Safety Report 8230908-0 (Version None)
Quarter: 2012Q1

REPORT INFORMATION
  Report Type: 
  Country: None (occurrence: None)
  Receive Date: 20120323
  Receipt Date: 20120320
  Transmission Date: 20120608
  Serious: Yes (Other)
  Sender: FDA-Public Use
  Company Number: ES-PFIZER INC-2012072123

PATIENT
  Age: 33 Year
  Sex: Female

DRUGS (2)
  1. SYNAREL [Suspect]
     Dosage: 1 INHALATION IN THE MORNING AND 1 INHALATION IN THE AFTERNOON
     Dates: start: 20120315
  2. SYNAREL [Suspect]
     Indication: ASSISTED FERTILISATION
     Dosage: 2 INHALATIONS IN THE MORNING AND 2 INHALATIONS IN THE AFTERNOON
     Route: 055
     Dates: start: 20120302

REACTIONS (1)
  - AMNESIA [None]
